FAERS Safety Report 11107430 (Version 3)
Quarter: 2015Q3

REPORT INFORMATION
  Report Type: Spontaneous
  Country: US (occurrence: US)
  Receive Date: 20150512
  Receipt Date: 20150710
  Transmission Date: 20151125
  Serious: Yes (Hospitalization, Other)
  Sender: FDA-Public Use
  Company Number: US-ASTRAZENECA-2015SE42261

PATIENT
  Age: 78 Year
  Sex: Female
  Weight: 64.4 kg

DRUGS (28)
  1. LASIX [Suspect]
     Active Substance: FUROSEMIDE
     Indication: FLUID IMBALANCE
     Route: 065
     Dates: start: 2011
  2. LASIX [Suspect]
     Active Substance: FUROSEMIDE
     Indication: DIURETIC THERAPY
     Route: 065
     Dates: start: 2011
  3. COUMADIN [Concomitant]
     Active Substance: WARFARIN SODIUM
     Indication: ABNORMAL CLOTTING FACTOR
     Route: 065
     Dates: start: 201101
  4. COUMADIN [Concomitant]
     Active Substance: WARFARIN SODIUM
     Indication: ANTICOAGULANT THERAPY
     Route: 065
     Dates: start: 201101
  5. SYMBICORT [Suspect]
     Active Substance: BUDESONIDE\FORMOTEROL FUMARATE DIHYDRATE
     Indication: ASTHMA
     Dosage: 160 4.5 MG TWO PUFFS TWICE DAILY
     Route: 055
     Dates: start: 2009
  6. METOPROLOL TARTRATE. [Concomitant]
     Active Substance: METOPROLOL TARTRATE
     Indication: CARDIAC DISORDER
     Route: 065
     Dates: start: 2015
  7. SYMBICORT [Suspect]
     Active Substance: BUDESONIDE\FORMOTEROL FUMARATE DIHYDRATE
     Indication: EMPHYSEMA
     Dosage: 160 4.5 MG TWO PUFFS TWICE DAILY
     Route: 055
     Dates: start: 2009
  8. COUMADIN [Concomitant]
     Active Substance: WARFARIN SODIUM
     Indication: ANTICOAGULANT THERAPY
     Route: 065
     Dates: start: 201101
  9. SYMBICORT [Suspect]
     Active Substance: BUDESONIDE\FORMOTEROL FUMARATE DIHYDRATE
     Indication: BRONCHITIS CHRONIC
     Dosage: 160 4.5 MG TWO PUFFS TWICE DAILY
     Route: 055
     Dates: start: 2009
  10. LASIX [Suspect]
     Active Substance: FUROSEMIDE
     Indication: DIURETIC THERAPY
     Route: 065
     Dates: start: 2011
  11. OXYGEN. [Concomitant]
     Active Substance: OXYGEN
     Indication: EMPHYSEMA
     Dosage: 4 LPM
     Route: 055
     Dates: start: 2011
  12. OMEPRAZOLE OTC [Suspect]
     Active Substance: OMEPRAZOLE
     Indication: GASTROOESOPHAGEAL REFLUX DISEASE
     Route: 048
     Dates: start: 2008
  13. LASIX [Suspect]
     Active Substance: FUROSEMIDE
     Indication: FLUID IMBALANCE
     Route: 065
     Dates: start: 201112
  14. LASIX [Suspect]
     Active Substance: FUROSEMIDE
     Indication: DIURETIC THERAPY
     Route: 065
     Dates: start: 2011
  15. LASIX [Suspect]
     Active Substance: FUROSEMIDE
     Indication: FLUID IMBALANCE
     Route: 065
     Dates: start: 2011
  16. PRAMIPEXOLE. [Concomitant]
     Active Substance: PRAMIPEXOLE
     Indication: RESTLESS LEGS SYNDROME
     Dates: start: 2009
  17. LISINOPRIL. [Suspect]
     Active Substance: LISINOPRIL
     Indication: BLOOD PRESSURE ABNORMAL
     Route: 048
     Dates: start: 201101
  18. METOPROLOL SUCCINATE. [Suspect]
     Active Substance: METOPROLOL SUCCINATE
     Indication: CARDIAC DISORDER
     Route: 048
     Dates: start: 201101, end: 2015
  19. LASIX [Suspect]
     Active Substance: FUROSEMIDE
     Indication: DIURETIC THERAPY
     Route: 065
     Dates: start: 201112
  20. COUMADIN [Concomitant]
     Active Substance: WARFARIN SODIUM
     Indication: ABNORMAL CLOTTING FACTOR
     Route: 065
     Dates: start: 201101
  21. PROAIR HFA [Concomitant]
     Active Substance: ALBUTEROL SULFATE
     Indication: ASTHMA
     Dosage: AS REQUIRED
     Route: 055
  22. OXYGEN. [Concomitant]
     Active Substance: OXYGEN
     Indication: ASTHMA
     Dosage: 4 LPM
     Route: 055
     Dates: start: 2011
  23. PREDNISONE. [Concomitant]
     Active Substance: PREDNISONE
     Dosage: 10 DAY REGIMEN TWICE
  24. LASIX [Suspect]
     Active Substance: FUROSEMIDE
     Indication: FLUID IMBALANCE
     Route: 065
     Dates: start: 2011
  25. DIGOXIN. [Concomitant]
     Active Substance: DIGOXIN
     Indication: ARRHYTHMIA
     Route: 065
     Dates: start: 201101
  26. CARDIZEM [Concomitant]
     Active Substance: DILTIAZEM HYDROCHLORIDE
     Route: 065
     Dates: start: 201101, end: 201106
  27. OXYGEN. [Concomitant]
     Active Substance: OXYGEN
     Indication: BRONCHITIS CHRONIC
     Dosage: 4 LPM
     Route: 055
     Dates: start: 2011
  28. ALBUTEROL SULFATE. [Concomitant]
     Active Substance: ALBUTEROL SULFATE

REACTIONS (11)
  - Dysuria [Unknown]
  - Intentional product misuse [Unknown]
  - Dyspnoea [Unknown]
  - Pneumonia [Unknown]
  - Cardiac disorder [Unknown]
  - Cough [Unknown]
  - Respiratory rate decreased [Unknown]
  - Weight decreased [Unknown]
  - Peripheral swelling [Unknown]
  - Atrial fibrillation [Recovered/Resolved]
  - Pulmonary congestion [Unknown]

NARRATIVE: CASE EVENT DATE: 2011
